FAERS Safety Report 23245134 (Version 1)
Quarter: 2023Q4

REPORT INFORMATION
  Report Type: Spontaneous
  Country: US (occurrence: US)
  Receive Date: 20231130
  Receipt Date: 20231130
  Transmission Date: 20240110
  Serious: No
  Sender: FDA-Public Use
  Company Number: US-IBSA PHARMA INC.-2023IBS000434

PATIENT

DRUGS (1)
  1. TIROSINT [Suspect]
     Active Substance: LEVOTHYROXINE SODIUM
     Indication: Hypothyroidism
     Dosage: 13 MICROGRAM
     Route: 048
     Dates: start: 20230313, end: 20230313

REACTIONS (6)
  - Chest discomfort [Unknown]
  - Palpitations [Unknown]
  - Tremor [Unknown]
  - Dyspnoea [Unknown]
  - Fatigue [Unknown]
  - Thyroxine free abnormal [Unknown]

NARRATIVE: CASE EVENT DATE: 20230313
